FAERS Safety Report 23379243 (Version 1)
Quarter: 2024Q1

REPORT INFORMATION
  Report Type: Report from Study
  Country: US (occurrence: US)
  Receive Date: 20240108
  Receipt Date: 20240108
  Transmission Date: 20240410
  Serious: Yes (Death, Hospitalization)
  Sender: FDA-Public Use
  Company Number: US-TEVA-VS-3134516

PATIENT
  Age: 46 Year

DRUGS (2)
  1. NITROFURANTOIN [Suspect]
     Active Substance: NITROFURANTOIN
     Indication: Urinary tract infection
     Route: 065
  2. NITROFURANTOIN [Suspect]
     Active Substance: NITROFURANTOIN
     Indication: Urinary tract infection
     Route: 065

REACTIONS (5)
  - Drug-induced liver injury [Fatal]
  - Multiple organ dysfunction syndrome [Fatal]
  - Mental status changes [Fatal]
  - Acute hepatic failure [Fatal]
  - Cell death [Fatal]
